FAERS Safety Report 18989833 (Version 1)
Quarter: 2021Q1

REPORT INFORMATION
  Report Type: Report from Study
  Country: None (occurrence: US)
  Receive Date: 20210310
  Receipt Date: 20210310
  Transmission Date: 20210420
  Serious: Yes (Hospitalization)
  Sender: FDA-Public Use
  Company Number: US-ABBVIE-21K-163-3792311-00

PATIENT
  Age: 67 Year
  Sex: Male
  Weight: 101.88 kg

DRUGS (6)
  1. VELCADE [Concomitant]
     Active Substance: BORTEZOMIB
     Indication: MANTLE CELL LYMPHOMA
     Dosage: WEEKLY
  2. IMBRUVICA [Suspect]
     Active Substance: IBRUTINIB
     Indication: MANTLE CELL LYMPHOMA
  3. BENDAMUSTINE [Concomitant]
     Active Substance: BENDAMUSTINE
     Indication: MANTLE CELL LYMPHOMA
     Dosage: HAD 5 CYCLES OF BENDAMUSTINE
     Dates: start: 20210105
  4. RITUXAN [Concomitant]
     Active Substance: RITUXIMAB
     Indication: MANTLE CELL LYMPHOMA
     Dosage: EVERY 2 MONTHS
  5. IMBRUVICA [Suspect]
     Active Substance: IBRUTINIB
     Indication: MANTLE CELL LYMPHOMA
     Route: 048
     Dates: start: 2020
  6. TYLENOL [Concomitant]
     Active Substance: ACETAMINOPHEN
     Indication: PAIN

REACTIONS (1)
  - Lymphocyte adoptive therapy [Unknown]

NARRATIVE: CASE EVENT DATE: 202102
